FAERS Safety Report 9674810 (Version 1)
Quarter: 2013Q4

REPORT INFORMATION
  Report Type: Spontaneous
  Country: US (occurrence: None)
  Receive Date: 20131106
  Receipt Date: 20131106
  Transmission Date: 20140711
  Serious: Yes (Hospitalization)
  Sender: FDA-Public Use
  Company Number: None

PATIENT
  Age: 58 Year
  Sex: Male
  Weight: 103.5 kg

DRUGS (7)
  1. CARIMUNE [Suspect]
     Indication: BLOOD IMMUNOGLOBULIN G DECREASED
     Route: 042
     Dates: start: 20131008
  2. CARIMUNE [Suspect]
     Indication: PNEUMONIA
     Route: 042
     Dates: start: 20131008
  3. VANCOMYCIN [Concomitant]
  4. INSULIN LISPRO [Concomitant]
  5. PREDNISONE [Concomitant]
  6. DIPHENHYDRAMINE [Concomitant]
  7. ACETAMINOPHEN [Concomitant]

REACTIONS (8)
  - Infusion related reaction [None]
  - Blood pressure increased [None]
  - Chills [None]
  - Pyrexia [None]
  - Heart rate increased [None]
  - Respiratory rate increased [None]
  - Oxygen saturation decreased [None]
  - Incorrect dose administered [None]
